FAERS Safety Report 7261992-9 (Version None)
Quarter: 2011Q1

REPORT INFORMATION
  Report Type: 
  Country: None (occurrence: None)
  Receive Date: 20110130
  Receipt Date: 20101104
  Transmission Date: 20110831
  Serious: No
  Sender: FDA-Public Use
  Company Number: US-ABBOTT-10P-163-0683349-00

PATIENT
  Age: 62 Year
  Sex: Female

DRUGS (4)
  1. METHOTREXATE [Concomitant]
     Indication: RHEUMATOID ARTHRITIS
     Dosage: 7 PILLS WEEKLY
     Route: 048
  2. VITAMIN D [Concomitant]
     Indication: RHEUMATOID ARTHRITIS
     Route: 048
  3. HUMIRA [Suspect]
     Indication: RHEUMATOID ARTHRITIS
     Dates: start: 20100601
  4. FOLIC ACID [Concomitant]
     Indication: RHEUMATOID ARTHRITIS
     Route: 048

REACTIONS (3)
  - WRONG TECHNIQUE IN DRUG USAGE PROCESS [None]
  - INCORRECT ROUTE OF DRUG ADMINISTRATION [None]
  - INJECTION SITE PAIN [None]
